FAERS Safety Report 7528674-7 (Version None)
Quarter: 2011Q2

REPORT INFORMATION
  Report Type: 
  Country: None (occurrence: None)
  Receive Date: 20110607
  Receipt Date: 20110531
  Transmission Date: 20111010
  Serious: Yes (Other)
  Sender: FDA-Public Use
  Company Number: US-SANOFI-AVENTIS-2011SA034842

PATIENT
  Age: 37 Year
  Sex: Female
  Weight: 55 kg

DRUGS (3)
  1. ALLEGRA D 24 HOUR [Suspect]
     Dosage: 180/240 MG
     Route: 048
     Dates: start: 20110421, end: 20110422
  2. ALLEGRA D 24 HOUR [Suspect]
     Indication: HEADACHE
     Dosage: 180/240 MG
     Route: 048
     Dates: start: 20110421, end: 20110422
  3. VITAMIN D [Concomitant]
     Indication: VITAMIN D DEFICIENCY

REACTIONS (12)
  - DIZZINESS [None]
  - DRY MOUTH [None]
  - HEART RATE INCREASED [None]
  - FLUSHING [None]
  - INSOMNIA [None]
  - HYPERTENSION [None]
  - BLOOD POTASSIUM DECREASED [None]
  - OVERDOSE [None]
  - MALAISE [None]
  - URINARY TRACT INFECTION [None]
  - GAIT DISTURBANCE [None]
  - WEIGHT DECREASED [None]
